FAERS Safety Report 24918024 (Version 1)
Quarter: 2025Q1

REPORT INFORMATION
  Report Type: Spontaneous
  Country: CN (occurrence: CN)
  Receive Date: 20250203
  Receipt Date: 20250203
  Transmission Date: 20250409
  Serious: Yes (Other)
  Sender: NOVARTIS
  Company Number: CN-002147023-NVSC2025CN018202

PATIENT
  Age: 6 Year
  Sex: Male

DRUGS (31)
  1. RUXOLITINIB [Suspect]
     Active Substance: RUXOLITINIB
     Indication: Epstein-Barr virus infection
     Route: 065
  2. RUXOLITINIB [Suspect]
     Active Substance: RUXOLITINIB
     Indication: Prophylaxis against graft versus host disease
     Route: 065
  3. RUXOLITINIB [Suspect]
     Active Substance: RUXOLITINIB
     Indication: Haemophagocytic lymphohistiocytosis
  4. CYCLOSPORINE [Suspect]
     Active Substance: CYCLOSPORINE
     Indication: Epstein-Barr virus infection
     Route: 065
  5. CYCLOSPORINE [Suspect]
     Active Substance: CYCLOSPORINE
     Indication: Haemophagocytic lymphohistiocytosis
  6. CYCLOSPORINE [Suspect]
     Active Substance: CYCLOSPORINE
     Indication: Prophylaxis against graft versus host disease
  7. MYCOPHENOLATE MOFETIL [Suspect]
     Active Substance: MYCOPHENOLATE MOFETIL
     Indication: Prophylaxis against graft versus host disease
     Route: 065
  8. METHOTREXATE [Suspect]
     Active Substance: METHOTREXATE
     Indication: Prophylaxis against graft versus host disease
     Route: 065
  9. ETOPOSIDE [Suspect]
     Active Substance: ETOPOSIDE
     Indication: Epstein-Barr virus infection
     Route: 065
  10. ETOPOSIDE [Suspect]
     Active Substance: ETOPOSIDE
     Indication: Haemophagocytic lymphohistiocytosis
     Route: 065
  11. CYCLOPHOSPHAMIDE [Suspect]
     Active Substance: CYCLOPHOSPHAMIDE
     Indication: Epstein-Barr virus infection
     Route: 065
  12. CYCLOPHOSPHAMIDE [Suspect]
     Active Substance: CYCLOPHOSPHAMIDE
     Indication: Haemophagocytic lymphohistiocytosis
  13. FLUDARABINE [Suspect]
     Active Substance: FLUDARABINE PHOSPHATE
     Indication: Bone marrow conditioning regimen
     Route: 065
  14. BUSULFAN [Suspect]
     Active Substance: BUSULFAN
     Indication: Bone marrow conditioning regimen
     Route: 065
  15. SINTILIMAB [Concomitant]
     Active Substance: SINTILIMAB
     Indication: Epstein-Barr virus infection
     Route: 065
  16. SINTILIMAB [Concomitant]
     Active Substance: SINTILIMAB
     Indication: Haemophagocytic lymphohistiocytosis
  17. NIVOLUMAB [Concomitant]
     Active Substance: NIVOLUMAB
     Indication: Epstein-Barr virus infection
     Route: 065
  18. METHYLPREDNISOLONE [Concomitant]
     Active Substance: METHYLPREDNISOLONE
     Indication: Epstein-Barr virus infection
     Route: 065
  19. METHYLPREDNISOLONE [Concomitant]
     Active Substance: METHYLPREDNISOLONE
     Indication: Haemophagocytic lymphohistiocytosis
  20. DOXORUBICIN [Concomitant]
     Active Substance: DOXORUBICIN
     Indication: Epstein-Barr virus infection
     Route: 065
  21. DOXORUBICIN [Concomitant]
     Active Substance: DOXORUBICIN
     Indication: Haemophagocytic lymphohistiocytosis
  22. DOXORUBICIN HYDROCHLORIDE [Concomitant]
     Active Substance: DOXORUBICIN HYDROCHLORIDE
     Indication: Epstein-Barr virus infection
     Route: 065
  23. DOXORUBICIN HYDROCHLORIDE [Concomitant]
     Active Substance: DOXORUBICIN HYDROCHLORIDE
     Indication: Haemophagocytic lymphohistiocytosis
  24. VINCRISTINE [Concomitant]
     Active Substance: VINCRISTINE
     Indication: Epstein-Barr virus infection
     Route: 065
  25. VINCRISTINE [Concomitant]
     Active Substance: VINCRISTINE
     Indication: Haemophagocytic lymphohistiocytosis
  26. PREDNISONE [Concomitant]
     Active Substance: PREDNISONE
     Indication: Epstein-Barr virus infection
     Route: 065
  27. PREDNISONE [Concomitant]
     Active Substance: PREDNISONE
     Indication: Haemophagocytic lymphohistiocytosis
  28. ASPARAGINASE [Concomitant]
     Active Substance: ASPARAGINASE
     Indication: Epstein-Barr virus infection
     Route: 065
  29. ASPARAGINASE [Concomitant]
     Active Substance: ASPARAGINASE
     Indication: Haemophagocytic lymphohistiocytosis
  30. TUCIDINOSTAT [Concomitant]
     Active Substance: TUCIDINOSTAT
     Indication: Epstein-Barr virus infection
     Route: 065
  31. TUCIDINOSTAT [Concomitant]
     Active Substance: TUCIDINOSTAT
     Indication: Haemophagocytic lymphohistiocytosis

REACTIONS (6)
  - Acute graft versus host disease [Unknown]
  - Haemophagocytic lymphohistiocytosis [Unknown]
  - Epstein-Barr virus infection [Unknown]
  - Disease progression [Unknown]
  - Therapy partial responder [Unknown]
  - Product use in unapproved indication [Unknown]
